FAERS Safety Report 14568184 (Version 1)
Quarter: 2018Q1

REPORT INFORMATION
  Report Type: Spontaneous
  Country: FR (occurrence: FR)
  Receive Date: 20180223
  Receipt Date: 20180223
  Transmission Date: 20180509
  Serious: Yes (Other)
  Sender: FDA-Public Use
  Company Number: FR-FERRINGPH-2018FE00787

PATIENT

DRUGS (1)
  1. MINIRIN [Suspect]
     Active Substance: DESMOPRESSIN ACETATE
     Indication: DIABETES INSIPIDUS
     Dosage: 60 ?G, DAILY (3 SPRAYS IN EACH NOSTRIL)
     Route: 045

REACTIONS (4)
  - Urinary retention [Recovered/Resolved]
  - Headache [Recovered/Resolved]
  - Drug dispensing error [Recovered/Resolved]
  - Accidental overdose [Recovered/Resolved]
